FAERS Safety Report 15976064 (Version 2)
Quarter: 2019Q3

REPORT INFORMATION
  Report Type: Spontaneous
  Country: US (occurrence: US)
  Receive Date: 20190218
  Receipt Date: 20190827
  Transmission Date: 20191004
  Serious: No
  Sender: FDA-Public Use
  Company Number: US-MYLANLABS-2019M1010104

PATIENT
  Sex: Male
  Weight: 99 kg

DRUGS (7)
  1. HYDROMORPHONE [Concomitant]
     Active Substance: HYDROMORPHONE
     Dosage: 16 MILLIGRAM, TID
  2. PARAFON FORTE DSC [Concomitant]
     Active Substance: CHLORZOXAZONE
     Dosage: 500 MILLIGRAM, TID
  3. FENTANYL. [Suspect]
     Active Substance: FENTANYL
     Indication: PRODUCT USED FOR UNKNOWN INDICATION
     Dosage: UNK
     Route: 062
  4. LORAZEPAM. [Concomitant]
     Active Substance: LORAZEPAM
     Dosage: 1 MILLIGRAM, TID
  5. FENTANYL TRANSDERMAL SYSTEM [Suspect]
     Active Substance: FENTANYL
     Indication: PRODUCT USED FOR UNKNOWN INDICATION
     Dosage: UNK
     Route: 062
  6. FENTANYL TRANSDERMAL SYSTEM [Suspect]
     Active Substance: FENTANYL
     Dosage: UNK
     Route: 062
  7. FENTANYL TRANSDERMAL SYSTEM [Suspect]
     Active Substance: FENTANYL
     Indication: PRODUCT USED FOR UNKNOWN INDICATION
     Dosage: POTENCY 100 UG IN 1 H
     Route: 062

REACTIONS (6)
  - Muscle tightness [Unknown]
  - Hyperhidrosis [Unknown]
  - Sleep disorder [Unknown]
  - Nausea [Unknown]
  - Musculoskeletal discomfort [Unknown]
  - Withdrawal syndrome [Unknown]
